FAERS Safety Report 6690640-1 (Version None)
Quarter: 2010Q2

REPORT INFORMATION
  Report Type: 
  Country: None (occurrence: None)
  Receive Date: 20100421
  Receipt Date: 20100406
  Transmission Date: 20101027
  Serious: Yes (Hospitalization, Other)
  Sender: FDA-Public Use
  Company Number: US-ELI_LILLY_AND_COMPANY-US201003005003

PATIENT
  Sex: Female
  Weight: 52.608 kg

DRUGS (19)
  1. ALIMTA [Suspect]
     Indication: NON-SMALL CELL LUNG CANCER
     Dosage: 500 MG/M2, UNK
     Route: 042
     Dates: start: 20090801, end: 20100201
  2. CARBOPLATIN [Concomitant]
     Indication: NON-SMALL CELL LUNG CANCER
     Dates: end: 20091216
  3. ALLEGRA [Concomitant]
     Dosage: 180 MG, DAILY (1/D)
  4. VITAMIN B-12 [Concomitant]
     Dosage: UNK, DAILY (1/D)
  5. VITAMIN B6 [Concomitant]
  6. CAPASAL [Concomitant]
  7. FOLVITE [Concomitant]
     Dosage: 1 MG, DAILY (1/D)
  8. KLOR-CON [Concomitant]
     Dosage: 10 MEQ, 2/D
  9. LEVOTHYROXINE [Concomitant]
     Dosage: 5 UG, DAILY (1/D)
  10. LIDODERM [Concomitant]
     Dosage: 1 D/F, DAILY (1/D)
  11. MAGNESIUM OXIDE [Concomitant]
     Dosage: 400 MG, 2/D
  12. TOPROL-XL [Concomitant]
     Dosage: 50 MG, DAILY (1/D)
  13. NORCO [Concomitant]
     Indication: PAIN
     Dosage: 1 D/F, AS NEEDED
  14. PROTONIX [Concomitant]
     Dosage: 40 MG, DAILY (1/D)
  15. PRAVACHOL [Concomitant]
     Dosage: 20 MG, DAILY (1/D)
  16. DETROL LA [Concomitant]
     Dosage: 4 MG, DAILY (1/D)
  17. TYLENOL                                 /SCH/ [Concomitant]
     Dosage: UNK, AS NEEDED
  18. ZOMETA [Concomitant]
     Dosage: 3 MG, UNKNOWN
     Route: 042
     Dates: end: 20100127
  19. PROCRIT [Concomitant]

REACTIONS (17)
  - ABDOMINAL PAIN [None]
  - ASPARTATE AMINOTRANSFERASE INCREASED [None]
  - ASTHENIA [None]
  - BLADDER SPASM [None]
  - BLOOD ALKALINE PHOSPHATASE INCREASED [None]
  - DIABETES MELLITUS [None]
  - DIARRHOEA [None]
  - FATIGUE [None]
  - FEBRILE NEUTROPENIA [None]
  - HAEMOTHORAX [None]
  - HYPOKALAEMIA [None]
  - OESOPHAGEAL CANDIDIASIS [None]
  - PANCYTOPENIA [None]
  - RENAL FAILURE [None]
  - SEPSIS [None]
  - URINARY TRACT INFECTION [None]
  - WEIGHT DECREASED [None]
